FAERS Safety Report 7305621-4 (Version None)
Quarter: 2011Q1

REPORT INFORMATION
  Report Type: 
  Country: None (occurrence: None)
  Receive Date: 20110222
  Receipt Date: 20110215
  Transmission Date: 20110831
  Serious: Yes (Hospitalization)
  Sender: FDA-Public Use
  Company Number: US-SHIRE-ALL1-2011-00471

PATIENT
  Sex: Female
  Weight: 50.794 kg

DRUGS (3)
  1. ADDERALL XR 10 [Suspect]
     Indication: ATTENTION DEFICIT/HYPERACTIVITY DISORDER
     Dosage: UNK MG, 1X/DAY:QD
     Route: 048
     Dates: start: 20050101
  2. SUBOXONE [Concomitant]
     Indication: PAIN
     Dosage: 8.25 MG, 2X/DAY:BID
     Route: 048
  3. WELLBUTRIN [Concomitant]
     Indication: DEPRESSION
     Dosage: 150 MG, 1X/DAY:QD
     Route: 048

REACTIONS (1)
  - SURGERY [None]
